FAERS Safety Report 18547710 (Version 1)
Quarter: 2020Q4

REPORT INFORMATION
  Report Type: Spontaneous
  Country: CA (occurrence: CA)
  Receive Date: 20201126
  Receipt Date: 20201126
  Transmission Date: 20210114
  Serious: Yes (Hospitalization)
  Sender: FDA-Public Use
  Company Number: CA-JNJFOC-20201132019

PATIENT
  Age: 56 Year
  Sex: Male

DRUGS (1)
  1. STELARA [Suspect]
     Active Substance: USTEKINUMAB
     Indication: PSORIASIS
     Route: 058

REACTIONS (13)
  - Hepatomegaly [Unknown]
  - Liver function test increased [Unknown]
  - Loss of personal independence in daily activities [Unknown]
  - Blood potassium abnormal [Unknown]
  - Pain in extremity [Unknown]
  - Nausea [Unknown]
  - Cardiac arrest [Unknown]
  - Confusional state [Unknown]
  - Blood bilirubin increased [Unknown]
  - Hepatic function abnormal [Unknown]
  - Malaise [Unknown]
  - Asthenia [Unknown]
  - White blood cell count increased [Unknown]
